FAERS Safety Report 4867560-8 (Version None)
Quarter: 2005Q4

REPORT INFORMATION
  Report Type: 
  Country: None (occurrence: None)
  Receive Date: 20051222
  Receipt Date: 20051209
  Transmission Date: 20060501
  Serious: Yes (Other)
  Sender: FDA-Public Use
  Company Number: 2005168068

PATIENT
  Sex: Male
  Weight: 90.7194 kg

DRUGS (3)
  1. VIAGRA [Suspect]
     Indication: ERECTILE DYSFUNCTION
     Dosage: (PRN), ORAL
     Route: 048
  2. GLIPIZIDE [Suspect]
     Indication: BLOOD GLUCOSE ABNORMAL
     Dosage: 5 MG (5 MG, 1 IN 1 D), ORAL
     Route: 048
  3. DRUGS USED IN ERECTILE DYSFUNCTION (OTHER UROLOGICALS, INCL ANTISPASMO [Suspect]
     Indication: ERECTILE DYSFUNCTION

REACTIONS (5)
  - DIABETIC NEUROPATHY [None]
  - DRUG INEFFECTIVE [None]
  - INJECTION SITE PAIN [None]
  - INJECTION SITE SCAR [None]
  - KNEE ARTHROPLASTY [None]
